FAERS Safety Report 13873175 (Version 1)
Quarter: 2017Q3

REPORT INFORMATION
  Report Type: Spontaneous
  Country: US (occurrence: None)
  Receive Date: 20170814
  Receipt Date: 20170814
  Transmission Date: 20171127
  Serious: Yes (Other)
  Sender: FDA-Public Use
  Company Number: None

PATIENT
  Age: 25 Year
  Sex: Female

DRUGS (1)
  1. OCREVUS [Suspect]
     Active Substance: OCRELIZUMAB
     Indication: MULTIPLE SCLEROSIS
     Dosage: FREQUENCY - DAY 1
     Route: 042
     Dates: start: 20170802, end: 20170803

REACTIONS (3)
  - Disorientation [None]
  - Blood pressure decreased [None]
  - Infusion related reaction [None]

NARRATIVE: CASE EVENT DATE: 20170803
